FAERS Safety Report 19209304 (Version 2)
Quarter: 2021Q2

REPORT INFORMATION
  Report Type: Spontaneous
  Country: NL (occurrence: NL)
  Receive Date: 20210504
  Receipt Date: 20210519
  Transmission Date: 20210717
  Serious: Yes (Hospitalization)
  Sender: FDA-Public Use
  Company Number: NL-ORGANON-O2104NLD002189

PATIENT
  Age: 20 Year
  Sex: Female
  Weight: 97 kg

DRUGS (2)
  1. PFIZER?BIONTECH COVID?19 VACCINE [Suspect]
     Active Substance: TOZINAMERAN
     Indication: COVID-19 IMMUNISATION
     Dosage: 1 DOSAGE FORM
     Dates: start: 20210221
  2. IMPLANON NXT [Suspect]
     Active Substance: ETONOGESTREL
     Indication: CONTRACEPTION
     Dosage: 1 DOSAGE FORM, 1 PIECE
     Dates: start: 2019

REACTIONS (3)
  - Intracranial pressure increased [Recovering/Resolving]
  - Papilloedema [Recovering/Resolving]
  - Cerebral venous sinus thrombosis [Recovering/Resolving]

NARRATIVE: CASE EVENT DATE: 20210305
